FAERS Safety Report 7095658-5 (Version None)
Quarter: 2010Q4

REPORT INFORMATION
  Report Type: 
  Country: None (occurrence: None)
  Receive Date: 20101111
  Receipt Date: 20101102
  Transmission Date: 20110411
  Serious: Yes (Hospitalization)
  Sender: FDA-Public Use
  Company Number: JP-NOVOPROD-317631

PATIENT
  Age: 13 Year
  Sex: Male

DRUGS (2)
  1. NORDITROPIN NORDIFLEX CHU [Suspect]
     Indication: GROWTH HORMONE DEFICIENCY
     Dosage: /SC
     Route: 058
     Dates: start: 20060101
  2. LEUPLIN [Concomitant]
     Dosage: /SC
     Route: 058

REACTIONS (1)
  - PROTEIN-LOSING GASTROENTEROPATHY [None]
